FAERS Safety Report 5295901-9 (Version None)
Quarter: 2007Q2

REPORT INFORMATION
  Report Type: 
  Country: None (occurrence: None)
  Receive Date: 20070413
  Receipt Date: 20070402
  Transmission Date: 20071010
  Serious: Yes (Hospitalization)
  Sender: FDA-Public Use
  Company Number: HQWYE284112JAN07

PATIENT
  Sex: Male

DRUGS (5)
  1. PANTOPRAZOLE [Suspect]
     Indication: GASTROOESOPHAGEAL REFLUX DISEASE
     Route: 048
     Dates: start: 20061221
  2. ACETYLSALICYLIC ACID SRT [Concomitant]
     Dosage: 100 MG
     Route: 048
     Dates: start: 20061025, end: 20061220
  3. XANAX [Concomitant]
     Indication: ANXIETY
     Dosage: .5 MG
     Route: 048
     Dates: start: 20061025, end: 20061220
  4. LEXOTAN [Concomitant]
     Indication: ANXIETY
     Dosage: 3 MG
     Route: 048
     Dates: start: 20061026
  5. SOLAXIN [Concomitant]
     Indication: MYALGIA
     Dosage: 200 MG
     Route: 048
     Dates: start: 20061025, end: 20061229

REACTIONS (1)
  - NON-CARDIAC CHEST PAIN [None]
